FAERS Safety Report 12353060 (Version 1)
Quarter: 2016Q2

REPORT INFORMATION
  Report Type: Spontaneous
  Country: DE (occurrence: DE)
  Receive Date: 20160510
  Receipt Date: 20160510
  Transmission Date: 20160815
  Serious: Yes (Other)
  Sender: FDA-Public Use
  Company Number: DE-BAUSCH-BL-2016-010337

PATIENT
  Age: 21 Year
  Sex: Female

DRUGS (4)
  1. TAVOR (LORAZEPAM) [Suspect]
     Active Substance: LORAZEPAM
     Indication: SUICIDE ATTEMPT
     Route: 048
     Dates: start: 20160425, end: 20160425
  2. BALDRIPARAN [Suspect]
     Active Substance: VALERIAN
     Indication: SUICIDE ATTEMPT
     Route: 048
     Dates: start: 20160425, end: 20160425
  3. VIVINOX SLEEP STARK SCHLAFTABLETTEN [Suspect]
     Active Substance: DIPHENHYDRAMINE HYDROCHLORIDE
     Indication: SUICIDE ATTEMPT
     Route: 048
     Dates: start: 20160425, end: 20160425
  4. VENLAFAXIN AL [Suspect]
     Active Substance: VENLAFAXINE HYDROCHLORIDE
     Indication: SUICIDE ATTEMPT
     Route: 048
     Dates: start: 20160425, end: 20160425

REACTIONS (8)
  - Hallucination [Unknown]
  - Anxiety [Unknown]
  - Tremor [Unknown]
  - Intentional overdose [Unknown]
  - Hypertension [Unknown]
  - Tachycardia [Unknown]
  - Dysarthria [Unknown]
  - Suicide attempt [Unknown]

NARRATIVE: CASE EVENT DATE: 20160425
